FAERS Safety Report 14852882 (Version 1)
Quarter: 2018Q2

REPORT INFORMATION
  Report Type: Spontaneous
  Country: CN (occurrence: CN)
  Receive Date: 20180507
  Receipt Date: 20180507
  Transmission Date: 20180711
  Serious: Yes (Life-Threatening, Hospitalization, Other)
  Sender: FDA-Public Use
  Company Number: CN-LINDE-CN-LHC-2018110

PATIENT
  Age: 56 Year
  Sex: Female

DRUGS (1)
  1. OXYGEN (GENERIC) [Suspect]
     Active Substance: OXYGEN
     Indication: CARBON MONOXIDE POISONING
     Dates: start: 201404

REACTIONS (2)
  - Acute pulmonary oedema [Recovered/Resolved]
  - Shock [Recovered/Resolved]
